FAERS Safety Report 8901146 (Version 1)
Quarter: 2012Q4

REPORT INFORMATION
  Report Type: 
  Country: US (occurrence: US)
  Receive Date: 20121109
  Receipt Date: 20121109
  Transmission Date: 20130627
  Serious: Yes (Other)
  Sender: FDA-Public Use
  Company Number: US-JNJFOC-20121003077

PATIENT
  Age: 40 Year
  Sex: Female
  Weight: 76.66 kg

DRUGS (5)
  1. DOXORUBICIN HYDROCHLORIDE (DOXIL) [Suspect]
     Indication: OVARIAN CANCER
     Route: 042
  2. CARBOPLATIN [Concomitant]
     Indication: OVARIAN CANCER
     Route: 065
  3. HERBAL MEDICATION [Concomitant]
     Route: 065
  4. ALOE VERA [Concomitant]
     Route: 065
  5. HERBAL/NUTRITIONAL SUPPLEMENTS [Concomitant]
     Route: 065

REACTIONS (1)
  - Angioedema [Recovered/Resolved]
